FAERS Safety Report 5624862-5 (Version None)
Quarter: 2008Q1

REPORT INFORMATION
  Report Type: 
  Country: None (occurrence: None)
  Receive Date: 20080213
  Receipt Date: 20080211
  Transmission Date: 20080703
  Serious: Yes (Death)
  Sender: FDA-Public Use
  Company Number: US-JNJFOC-20080202624

PATIENT
  Age: 4 Decade
  Sex: Male
  Weight: 107.96 kg

DRUGS (3)
  1. INVEGA [Suspect]
     Indication: SCHIZOPHRENIA
     Route: 048
  2. KLONOPIN [Concomitant]
     Route: 048
  3. DILANTIN [Concomitant]
     Route: 048

REACTIONS (1)
  - DEATH [None]
